FAERS Safety Report 11984903 (Version 2)
Quarter: 2016Q1

REPORT INFORMATION
  Report Type: Spontaneous
  Country: US (occurrence: US)
  Receive Date: 20160201
  Receipt Date: 20160226
  Transmission Date: 20160526
  Serious: No
  Sender: FDA-Public Use
  Company Number: US-PFIZER INC-2016046529

PATIENT
  Age: 38 Year
  Sex: Male
  Weight: 74.84 kg

DRUGS (6)
  1. VICODIN [Concomitant]
     Active Substance: ACETAMINOPHEN\HYDROCODONE BITARTRATE
     Indication: PAIN
     Dosage: TOOK ONE TABLET BY MOUTH THREE DAYS AGO
     Route: 048
  2. VICODIN [Concomitant]
     Active Substance: ACETAMINOPHEN\HYDROCODONE BITARTRATE
     Indication: SLEEP DISORDER
  3. ADVIL ALLERGY AND CONGESTION RELIEF [Suspect]
     Active Substance: CHLORPHENIRAMINE MALEATE\IBUPROFEN\PHENYLEPHRINE HYDROCHLORIDE
     Indication: ALLERGIC SINUSITIS
     Dosage: A TABLET EVERY 4 TO 5 TIMES A DAY
  4. CHLORPHENIRAMINE. [Suspect]
     Active Substance: CHLORPHENIRAMINE
     Dosage: UNK
  5. NASAL RELIEF SPRAY [Suspect]
     Active Substance: OXYMETAZOLINE HYDROCHLORIDE
     Indication: HYPERSENSITIVITY
     Dosage: 4 DF, 2 SPRAYS EACH NOSTRIL, 3 TO 4 TIMES A DAY
     Route: 045
  6. LORATADINE. [Concomitant]
     Active Substance: LORATADINE
     Dosage: ONE IN THE MORNING AND ONE SOMETIMES AT NIGHT

REACTIONS (4)
  - Inappropriate schedule of drug administration [Unknown]
  - Expired product administered [Unknown]
  - Drug screen positive [Unknown]
  - Intentional product misuse [Unknown]

NARRATIVE: CASE EVENT DATE: 20160125
